FAERS Safety Report 9632964 (Version 1)
Quarter: 2013Q4

REPORT INFORMATION
  Report Type: Spontaneous
  Country: US (occurrence: US)
  Receive Date: 20131018
  Receipt Date: 20131018
  Transmission Date: 20140711
  Serious: Yes (Other)
  Sender: FDA-Public Use
  Company Number: US-BRISTOL-MYERS SQUIBB COMPANY-19525369

PATIENT
  Age: 57 Year
  Sex: Female
  Weight: 84.8 kg

DRUGS (6)
  1. BYDUREON [Suspect]
     Indication: TYPE 2 DIABETES MELLITUS
  2. ONGLYZA TABS [Suspect]
     Indication: TYPE 2 DIABETES MELLITUS
  3. METFORMIN HCL [Suspect]
  4. GLIMEPIRIDE [Suspect]
     Indication: TYPE 2 DIABETES MELLITUS
  5. TYLENOL [Concomitant]
  6. ASPIRIN [Concomitant]
     Dosage: 100MG OID

REACTIONS (3)
  - Hepatitis [Recovered/Resolved]
  - Headache [Unknown]
  - Therapeutic response decreased [Unknown]
